FAERS Safety Report 7293207-X (Version None)
Quarter: 2011Q1

REPORT INFORMATION
  Report Type: 
  Country: None (occurrence: None)
  Receive Date: 20110215
  Receipt Date: 20110209
  Transmission Date: 20110831
  Serious: Yes (Hospitalization)
  Sender: FDA-Public Use
  Company Number: DE-PFIZER INC-DE-WYE-H13352210

PATIENT
  Age: 80 Year
  Sex: Female

DRUGS (10)
  1. METRONIDAZOLE [Interacting]
     Indication: PNEUMONIA
     Dosage: 500 MG, 3X/DAY
     Route: 042
     Dates: start: 20080826, end: 20080903
  2. THIAMAZOLE [Concomitant]
     Dosage: UNK
     Route: 048
     Dates: start: 20080824
  3. NOVONORM [Concomitant]
     Dosage: UNK
     Route: 048
     Dates: start: 20070101
  4. ROCEPHIN [Suspect]
     Indication: PNEUMONIA
     Dosage: 1 G, 1X/DAY
     Route: 042
     Dates: start: 20080826, end: 20080903
  5. MESALAZINE [Concomitant]
     Dosage: UNK
     Route: 048
     Dates: start: 20080824
  6. PANTOPRAZOLE [Interacting]
     Indication: PROPHYLAXIS AGAINST GASTROINTESTINAL ULCER
     Dosage: 20 MG, 1X/DAY
     Route: 048
     Dates: start: 20080823
  7. PREDNISOLONE [Interacting]
     Indication: COLITIS ULCERATIVE
     Dosage: 30 MG, 1X/DAY
     Route: 048
     Dates: start: 20080824
  8. ACETYLSALICYLIC ACID [Concomitant]
     Route: 048
  9. REMINYL [Concomitant]
     Dosage: UNK
     Route: 048
     Dates: start: 20070101
  10. RAMIPRIL [Concomitant]
     Dosage: UNK
     Route: 048
     Dates: start: 19900101

REACTIONS (2)
  - CLOSTRIDIUM DIFFICILE COLITIS [None]
  - DRUG INTERACTION [None]
